FAERS Safety Report 8471317-9 (Version None)
Quarter: 2012Q2

REPORT INFORMATION
  Report Type: 
  Country: None (occurrence: None)
  Receive Date: 20120627
  Receipt Date: 20120618
  Transmission Date: 20120825
  Serious: Yes (Other)
  Sender: FDA-Public Use
  Company Number: BR-JNJFOC-20120610178

PATIENT
  Sex: Female
  Weight: 49 kg

DRUGS (5)
  1. HUMIRA [Concomitant]
     Indication: CROHN'S DISEASE
     Route: 065
  2. IMURAN [Concomitant]
     Indication: IMMUNOSUPPRESSION
     Route: 065
  3. MESALAMINE [Concomitant]
     Indication: ANTIINFLAMMATORY THERAPY
     Route: 065
  4. REMICADE [Suspect]
     Indication: CROHN'S DISEASE
     Route: 042
     Dates: start: 20120504
  5. REMICADE [Suspect]
     Route: 042
     Dates: start: 20070101, end: 20111101

REACTIONS (7)
  - PAIN [None]
  - WEIGHT INCREASED [None]
  - HAEMORRHAGE [None]
  - ANAEMIA [None]
  - WEIGHT DECREASED [None]
  - THERAPEUTIC RESPONSE DECREASED [None]
  - DEHYDRATION [None]
